FAERS Safety Report 8806709 (Version 1)
Quarter: 2012Q4

REPORT INFORMATION
  Report Type: Spontaneous
  Country: US (occurrence: None)
  Receive Date: 20120920
  Receipt Date: 20120920
  Transmission Date: 20130627
  Serious: Yes (Hospitalization, Disabling)
  Sender: FDA-Public Use
  Company Number: None

PATIENT
  Age: 19 Year
  Sex: Female
  Weight: 58.97 kg

DRUGS (2)
  1. SMZ-TMP DS [Suspect]
     Indication: INFECTION
     Dosage: 800 160 Two Times daily mouth
     Route: 048
     Dates: start: 20120820, end: 20120830
  2. SMZ-TMP DS [Suspect]

REACTIONS (5)
  - Mania [None]
  - Psychotic disorder [None]
  - Aggression [None]
  - Imprisonment [None]
  - Drug ineffective [None]
